FAERS Safety Report 20777739 (Version 3)
Quarter: 2022Q2

REPORT INFORMATION
  Report Type: Spontaneous
  Country: CN (occurrence: CN)
  Receive Date: 20220503
  Receipt Date: 20220518
  Transmission Date: 20220721
  Serious: Yes (Hospitalization, Other)
  Sender: FDA-Public Use
  Company Number: CN-BoehringerIngelheim-2022-BI-167582

PATIENT
  Age: 73 Year
  Sex: Male

DRUGS (2)
  1. GILOTRIF [Suspect]
     Active Substance: AFATINIB
     Indication: Non-small cell lung cancer
     Route: 048
  2. GILOTRIF [Suspect]
     Active Substance: AFATINIB
     Indication: Squamous cell carcinoma of lung

REACTIONS (2)
  - Metastatic squamous cell carcinoma [Unknown]
  - Skin ulcer haemorrhage [Recovering/Resolving]

NARRATIVE: CASE EVENT DATE: 20220101
